FAERS Safety Report 15074998 (Version 2)
Quarter: 2023Q4

REPORT INFORMATION
  Report Type: Spontaneous
  Country: US (occurrence: US)
  Receive Date: 20180627
  Receipt Date: 20231128
  Transmission Date: 20240109
  Serious: Yes (Hospitalization, Other)
  Sender: FDA-Public Use
  Company Number: US-SAOL THERAPEUTICS-2017SAO01384

PATIENT
  Age: 63 Year
  Sex: Male

DRUGS (6)
  1. BACLOFEN [Suspect]
     Active Substance: BACLOFEN
     Indication: Spinal pain
     Dosage: 49 ?G, \DAY
     Route: 037
  2. BACLOFEN [Suspect]
     Active Substance: BACLOFEN
     Dosage: 0.92 ?G, \DAY
     Route: 037
     Dates: start: 20171020
  3. BUPIVACAINE [Suspect]
     Active Substance: BUPIVACAINE
     Dosage: 1.6 MG, \DAY
     Route: 037
  4. BUPIVACAINE [Suspect]
     Active Substance: BUPIVACAINE
     Dosage: 0.307 MG, \DAY
     Route: 037
     Dates: start: 20171020
  5. MORPHINE [Suspect]
     Active Substance: MORPHINE
     Dosage: 13 MG, \DAY
     Route: 037
  6. MORPHINE [Suspect]
     Active Substance: MORPHINE
     Dosage: 0.246 MG, \DAY
     Route: 037
     Dates: start: 20171020

REACTIONS (4)
  - Pain [Unknown]
  - Diarrhoea [Unknown]
  - Off label use [Unknown]
  - Device failure [Not Recovered/Not Resolved]

NARRATIVE: CASE EVENT DATE: 20170821
